FAERS Safety Report 23023497 (Version 2)
Quarter: 2023Q4

REPORT INFORMATION
  Report Type: Spontaneous
  Country: US (occurrence: US)
  Receive Date: 20231003
  Receipt Date: 20231016
  Transmission Date: 20240110
  Serious: Yes (Hospitalization)
  Sender: FDA-Public Use
  Company Number: US-TEVA-2023-US-2930655

PATIENT
  Age: 18 Year
  Sex: Male

DRUGS (7)
  1. METHOTREXATE [Suspect]
     Active Substance: METHOTREXATE
     Indication: Burkitt^s lymphoma
     Dosage: INDUCTION CHEMOTHERAPY WITH R-COPADM
     Route: 065
     Dates: start: 2022
  2. RITUXIMAB [Concomitant]
     Active Substance: RITUXIMAB
     Indication: Burkitt^s lymphoma
     Dosage: INDUCTION CHEMOTHERAPY WITH R-COPADM
     Route: 065
     Dates: start: 2022
  3. CYCLOPHOSPHAMIDE [Concomitant]
     Active Substance: CYCLOPHOSPHAMIDE
     Indication: Burkitt^s lymphoma
     Dosage: INDUCTION CHEMOTHERAPY WITH R-COPADM
     Route: 065
     Dates: start: 2022
  4. VINCRISTINE [Concomitant]
     Active Substance: VINCRISTINE
     Indication: Burkitt^s lymphoma
     Dosage: INDUCTION CHEMOTHERAPY WITH R-COPADM
     Route: 065
     Dates: start: 2022
  5. PREDNISONE [Concomitant]
     Active Substance: PREDNISONE
     Indication: Burkitt^s lymphoma
     Dosage: INDUCTION CHEMOTHERAPY WITH R-COPADM
     Route: 065
     Dates: start: 2022
  6. DOXORUBICIN [Concomitant]
     Active Substance: DOXORUBICIN
     Indication: Burkitt^s lymphoma
     Dosage: INDUCTION CHEMOTHERAPY WITH R-COPADM
     Route: 065
     Dates: start: 2022
  7. MORPHINE [Concomitant]
     Active Substance: MORPHINE
     Indication: Pain
     Route: 065
     Dates: start: 2022

REACTIONS (1)
  - Toxic leukoencephalopathy [Unknown]

NARRATIVE: CASE EVENT DATE: 20221125
